FAERS Safety Report 10866182 (Version 1)
Quarter: 2015Q1

REPORT INFORMATION
  Report Type: Spontaneous
  Country: US (occurrence: None)
  Receive Date: 20150219
  Receipt Date: 20150219
  Transmission Date: 20150721
  Serious: Yes (Other)
  Sender: FDA-Public Use
  Company Number: US-001413

PATIENT
  Sex: Female
  Weight: 63.05 kg

DRUGS (2)
  1. CORTEF [Concomitant]
     Active Substance: HYDROCORTISONE
  2. GATTEX [Suspect]
     Active Substance: TEDUGLUTIDE\WATER
     Indication: SHORT-BOWEL SYNDROME
     Dosage: DF
     Route: 058
     Dates: start: 20140604

REACTIONS (3)
  - Hydronephrosis [None]
  - Weight decreased [None]
  - Adrenal insufficiency [None]

NARRATIVE: CASE EVENT DATE: 2014
